FAERS Safety Report 6285452-7 (Version None)
Quarter: 2009Q3

REPORT INFORMATION
  Report Type: 
  Country: None (occurrence: None)
  Receive Date: 20090727
  Receipt Date: 20090722
  Transmission Date: 20100115
  Serious: No
  Sender: FDA-Public Use
  Company Number: US-B.I. PHARMACEUTICALS,INC./RIDGEFIELD-2009-BP-08717BP

PATIENT
  Sex: Female

DRUGS (3)
  1. CATAPRES-TTS-1 [Suspect]
     Indication: BACK PAIN
     Dosage: 0.2 MG
     Route: 061
     Dates: start: 20090716, end: 20090720
  2. CATAPRES-TTS-1 [Suspect]
     Indication: PAIN
  3. NORCO [Concomitant]
     Indication: PAIN

REACTIONS (1)
  - THERAPEUTIC PRODUCT INEFFECTIVE FOR UNAPPROVED INDICATION [None]
